FAERS Safety Report 6765506-9 (Version None)
Quarter: 2010Q2

REPORT INFORMATION
  Report Type: 
  Country: None (occurrence: None)
  Receive Date: 20100611
  Receipt Date: 20100609
  Transmission Date: 20101027
  Serious: Yes (Death)
  Sender: FDA-Public Use
  Company Number: KR-ASTRAZENECA-2010SE26805

PATIENT
  Age: 25421 Day
  Sex: Male
  Weight: 46.4 kg

DRUGS (1)
  1. IRESSA [Suspect]
     Indication: NON-SMALL CELL LUNG CANCER
     Route: 048
     Dates: start: 20040916, end: 20040923

REACTIONS (1)
  - RESPIRATORY FAILURE [None]
